FAERS Safety Report 16118986 (Version 1)
Quarter: 2019Q1

REPORT INFORMATION
  Report Type: Spontaneous
  Country: US (occurrence: US)
  Receive Date: 20190326
  Receipt Date: 20190326
  Transmission Date: 20190418
  Serious: Yes (Hospitalization, Other)
  Sender: FDA-Public Use
  Company Number: US-JNJFOC-20190336054

PATIENT
  Age: 43 Year
  Sex: Male

DRUGS (1)
  1. INVOKAMET [Suspect]
     Active Substance: CANAGLIFLOZIN\METFORMIN HYDROCHLORIDE
     Indication: PRODUCT USED FOR UNKNOWN INDICATION
     Route: 048
     Dates: start: 20160415, end: 20170717

REACTIONS (4)
  - Cellulitis [Unknown]
  - Osteomyelitis [Unknown]
  - Toe amputation [Unknown]
  - Skin ulcer [Unknown]

NARRATIVE: CASE EVENT DATE: 201606
